FAERS Safety Report 12427960 (Version 3)
Quarter: 2016Q2

REPORT INFORMATION
  Report Type: Spontaneous
  Country: US (occurrence: US)
  Receive Date: 20160602
  Receipt Date: 20160622
  Transmission Date: 20160815
  Serious: Yes (Hospitalization)
  Sender: FDA-Public Use
  Company Number: US-ASTELLAS-2016US021350

PATIENT
  Age: 83 Year
  Sex: Female

DRUGS (2)
  1. TARCEVA [Suspect]
     Active Substance: ERLOTINIB HYDROCHLORIDE
     Indication: LUNG NEOPLASM MALIGNANT
     Dosage: 150 MG, ONCE DAILY MOST RECENT DOSE 25/DEC/2015
     Route: 048
     Dates: start: 20151224, end: 20160101
  2. TARCEVA [Suspect]
     Active Substance: ERLOTINIB HYDROCHLORIDE
     Route: 048
     Dates: start: 20160105

REACTIONS (16)
  - Back pain [Unknown]
  - Oedema peripheral [Recovering/Resolving]
  - Fluid retention [Unknown]
  - Swelling [Unknown]
  - Alopecia [Unknown]
  - Swollen tongue [Unknown]
  - Anxiety [Unknown]
  - Stomatitis [Unknown]
  - Rash [Unknown]
  - Dyspnoea exertional [Unknown]
  - Ageusia [Unknown]
  - Tongue ulceration [Unknown]
  - Decreased appetite [Unknown]
  - Stomatitis [Recovered/Resolved]
  - Skin exfoliation [Unknown]
  - Vomiting [Unknown]

NARRATIVE: CASE EVENT DATE: 20160101
